FAERS Safety Report 7070241-6 (Version None)
Quarter: 2010Q4

REPORT INFORMATION
  Report Type: 
  Country: None (occurrence: None)
  Receive Date: 20101028
  Receipt Date: 20100928
  Transmission Date: 20110411
  Serious: No
  Sender: FDA-Public Use
  Company Number: US-WYE-H17852910

PATIENT
  Age: 92 Year
  Sex: Male
  Weight: 57.66 kg

DRUGS (1)
  1. PROTONIX [Suspect]
     Indication: GASTROOESOPHAGEAL REFLUX DISEASE
     Route: 062

REACTIONS (1)
  - FEEDING TUBE COMPLICATION [None]
